FAERS Safety Report 24933881 (Version 1)
Quarter: 2025Q1

REPORT INFORMATION
  Report Type: Spontaneous
  Country: IT (occurrence: IT)
  Receive Date: 20250206
  Receipt Date: 20250206
  Transmission Date: 20250408
  Serious: Yes (Hospitalization)
  Sender: EXELIXIS
  Company Number: None

PATIENT
  Age: 54 Year
  Sex: Male

DRUGS (8)
  1. CABOMETYX [Suspect]
     Active Substance: CABOZANTINIB S-MALATE
     Indication: Renal cancer
     Route: 048
  2. OPDIVO [Suspect]
     Active Substance: NIVOLUMAB
     Indication: Renal cancer
     Route: 042
  3. XANAX [Concomitant]
     Active Substance: ALPRAZOLAM
  4. ENTECAVIR [Concomitant]
     Active Substance: ENTECAVIR
  5. LASIX [Concomitant]
     Active Substance: FUROSEMIDE
  6. CORTISONE ACETATE [Concomitant]
     Active Substance: CORTISONE ACETATE
  7. XARELTO [Concomitant]
     Active Substance: RIVAROXABAN
  8. LEVOTHYROXINE SODIUM [Concomitant]
     Active Substance: LEVOTHYROXINE SODIUM

REACTIONS (1)
  - Anaemia [Recovering/Resolving]

NARRATIVE: CASE EVENT DATE: 20240311
